FAERS Safety Report 15948496 (Version 4)
Quarter: 2020Q2

REPORT INFORMATION
  Report Type: Report from Study
  Country: DE (occurrence: DE)
  Receive Date: 20190212
  Receipt Date: 20200518
  Transmission Date: 20200713
  Serious: Yes (Hospitalization, Other)
  Sender: FDA-Public Use
  Company Number: DE-ACCORD-105896

PATIENT
  Age: 75 Year
  Sex: Male
  Weight: 81 kg

DRUGS (22)
  1. LISIHEXAL [Concomitant]
     Active Substance: LISINOPRIL
     Indication: PRODUCT USED FOR UNKNOWN INDICATION
     Dosage: UNK
     Route: 065
  2. CORTISONE [Concomitant]
     Active Substance: CORTISONE
     Indication: PRODUCT USED FOR UNKNOWN INDICATION
     Dosage: UNK
  3. ROACTEMRA [Suspect]
     Active Substance: TOCILIZUMAB
     Indication: VASCULITIS
     Dosage: 162 MG BID, ?ALSO RECEIVED ON 06-JUL-2015 FOR RHEUMATOID ARTHRITIS
     Route: 058
     Dates: start: 20190227, end: 20190327
  4. ROACTEMRA [Suspect]
     Active Substance: TOCILIZUMAB
     Indication: VASCULITIS
     Dosage: 162 MG BID, ?ALSO RECEIVED ON 06-JUL-2015 FOR RHEUMATOID ARTHRITIS
     Route: 058
     Dates: end: 201506
  5. ROACTEMRA [Suspect]
     Active Substance: TOCILIZUMAB
     Indication: VASCULITIS
     Dosage: 162 MG BID, ?ALSO RECEIVED ON 06-JUL-2015 FOR RHEUMATOID ARTHRITIS
     Route: 058
     Dates: start: 20180414
  6. QUETIAPINE. [Suspect]
     Active Substance: QUETIAPINE
     Indication: PRODUCT USED FOR UNKNOWN INDICATION
     Dosage: 25 MG, QD
     Route: 065
  7. CLEXANE [Suspect]
     Active Substance: ENOXAPARIN SODIUM
     Indication: VENOUS THROMBOSIS LIMB
     Dosage: UNK
     Route: 065
     Dates: start: 201507
  8. ROACTEMRA [Suspect]
     Active Substance: TOCILIZUMAB
     Indication: VASCULITIS
     Dosage: 162 MG BID, ?ALSO RECEIVED ON 06-JUL-2015 FOR RHEUMATOID ARTHRITIS
     Route: 058
  9. NADROPARIN [Suspect]
     Active Substance: NADROPARIN
     Indication: VENOUS THROMBOSIS LIMB
  10. PANTOPRAZOLE [Concomitant]
     Active Substance: PANTOPRAZOLE
     Dosage: UNK
  11. ROACTEMRA [Suspect]
     Active Substance: TOCILIZUMAB
     Indication: VASCULITIS
     Dosage: 162 MG BID, ?ALSO RECEIVED ON 06-JUL-2015 FOR RHEUMATOID ARTHRITIS
     Route: 058
     Dates: start: 20190328, end: 20190404
  12. PROLIA [Suspect]
     Active Substance: DENOSUMAB
     Indication: OSTEOPOROSIS
     Route: 058
     Dates: start: 201405
  13. AMLODIPINE [Concomitant]
     Active Substance: AMLODIPINE BESYLATE
  14. ROACTEMRA [Suspect]
     Active Substance: TOCILIZUMAB
     Indication: VASCULITIS
     Dosage: 162 MG BID, ?ALSO RECEIVED ON 06-JUL-2015 FOR RHEUMATOID ARTHRITIS
     Route: 058
     Dates: start: 20150706, end: 20171025
  15. DENOSUMAB [Suspect]
     Active Substance: DENOSUMAB
     Indication: PRODUCT USED FOR UNKNOWN INDICATION
     Dosage: UNK
  16. ESCITALOPRAM [Concomitant]
     Active Substance: ESCITALOPRAM OXALATE
     Indication: PRODUCT USED FOR UNKNOWN INDICATION
     Dosage: UNK
     Route: 048
  17. ROACTEMRA [Suspect]
     Active Substance: TOCILIZUMAB
     Indication: VASCULITIS
     Dosage: 162 MG BID, ?ALSO RECEIVED ON 06-JUL-2015 FOR RHEUMATOID ARTHRITIS
     Route: 058
     Dates: start: 201811
  18. COLECALCIFEROL [Suspect]
     Active Substance: CHOLECALCIFEROL
     Indication: OSTEOPOROSIS
     Dosage: UNK
     Route: 048
     Dates: start: 201204
  19. AMLODIPINE [Concomitant]
     Active Substance: AMLODIPINE BESYLATE
  20. FRAXIPARINE [Suspect]
     Active Substance: NADROPARIN CALCIUM
     Indication: VENOUS THROMBOSIS LIMB
     Dosage: UNK
     Route: 065
     Dates: start: 201507
  21. ROACTEMRA [Suspect]
     Active Substance: TOCILIZUMAB
     Indication: VASCULITIS
     Dosage: 162 MG BID, ?ALSO RECEIVED ON 06-JUL-2015 FOR RHEUMATOID ARTHRITIS
     Route: 058
     Dates: start: 201904
  22. ROACTEMRA [Suspect]
     Active Substance: TOCILIZUMAB
     Indication: VASCULITIS
     Dosage: 162 MG BID, ?ALSO RECEIVED ON 06-JUL-2015 FOR RHEUMATOID ARTHRITIS
     Route: 058
     Dates: start: 20180131

REACTIONS (25)
  - Sleep disorder [Unknown]
  - Impaired healing [Recovered/Resolved]
  - Sepsis [Recovering/Resolving]
  - Lymphoedema [Recovered/Resolved]
  - Autoimmune disorder [Unknown]
  - Prostate cancer [Recovered/Resolved]
  - Erysipelas [Recovering/Resolving]
  - Eye inflammation [Recovering/Resolving]
  - Acetabulum fracture [Recovering/Resolving]
  - Soft tissue disorder [Recovered/Resolved]
  - Venous thrombosis limb [Not Recovered/Not Resolved]
  - Fall [Unknown]
  - Suture rupture [Recovered/Resolved]
  - Platelet count decreased [Unknown]
  - Bronchitis [Recovered/Resolved]
  - Inappropriate schedule of product administration [Unknown]
  - C-reactive protein increased [Recovering/Resolving]
  - Rash erythematous [Unknown]
  - Leukopenia [Recovered/Resolved]
  - Angioedema [Recovered/Resolved]
  - Wound dehiscence [Recovered/Resolved]
  - Lymphocele [Recovered/Resolved]
  - Hyperaesthesia [Unknown]
  - Depression [Not Recovered/Not Resolved]
  - Dysuria [Unknown]

NARRATIVE: CASE EVENT DATE: 201407
